FAERS Safety Report 9926025 (Version 2)
Quarter: 2014Q1

REPORT INFORMATION
  Report Type: Spontaneous
  Country: IL (occurrence: IL)
  Receive Date: 20140226
  Receipt Date: 20140305
  Transmission Date: 20141002
  Serious: Yes (Other)
  Sender: FDA-Public Use
  Company Number: IL-SA-2014SA019079

PATIENT
  Age: 10 Year
  Sex: Female

DRUGS (4)
  1. MOZOBIL [Suspect]
     Indication: HAEMATOPOIETIC STEM CELL MOBILISATION
     Dosage: SINGLE DOSE
     Route: 065
     Dates: start: 20140127
  2. GRANULOCYTE COLONY-STIMULATING FACTOR NOS [Concomitant]
     Indication: HAEMATOPOIETIC STEM CELL MOBILISATION
  3. DEXAMETHASONE [Concomitant]
  4. ZANTAC [Concomitant]

REACTIONS (3)
  - Meningitis aseptic [Recovered/Resolved]
  - Pyrexia [Recovered/Resolved]
  - Musculoskeletal stiffness [Recovered/Resolved]
